FAERS Safety Report 12013669 (Version 2)
Quarter: 2016Q2

REPORT INFORMATION
  Report Type: Report from Study
  Country: IE (occurrence: IE)
  Receive Date: 20160205
  Receipt Date: 20160401
  Transmission Date: 20160815
  Serious: Yes (Hospitalization)
  Sender: FDA-Public Use
  Company Number: IE-EXELIXIS-XL18416005996

PATIENT
  Age: 69 Year
  Sex: Male

DRUGS (17)
  1. ELTROXIN [Concomitant]
     Active Substance: LEVOTHYROXINE
  2. VALSARTAN. [Concomitant]
     Active Substance: VALSARTAN
  3. AMITRIPTYLINE [Concomitant]
     Active Substance: AMITRIPTYLINE
  4. FELODIPINE. [Concomitant]
     Active Substance: FELODIPINE
  5. XL184 [Suspect]
     Active Substance: CABOZANTINIB
     Indication: RENAL CELL CARCINOMA
     Dosage: 60 MG, QD
     Route: 048
     Dates: start: 20140718, end: 20160125
  6. ONE ALPHA [Concomitant]
     Active Substance: ALFACALCIDOL
  7. ATARAX [Concomitant]
     Active Substance: HYDROXYZINE\HYDROXYZINE HYDROCHLORIDE
  8. ATORVASTATIN [Concomitant]
     Active Substance: ATORVASTATIN
  9. CALCICHEW-D3 FORTE [Concomitant]
     Active Substance: CALCIUM\CHOLECALCIFEROL
  10. PALLADONE [Concomitant]
     Active Substance: HYDROMORPHONE HYDROCHLORIDE
  11. DULOXETINE. [Concomitant]
     Active Substance: DULOXETINE
  12. ASPIRIN. [Concomitant]
     Active Substance: ASPIRIN
  13. METFORMIN [Concomitant]
     Active Substance: METFORMIN HYDROCHLORIDE
  14. TAMULOSIN [Concomitant]
     Active Substance: TAMSULOSIN
  15. LYRICA [Concomitant]
     Active Substance: PREGABALIN
  16. FINASTERIDE. [Concomitant]
     Active Substance: FINASTERIDE
  17. LIDOCAINE. [Concomitant]
     Active Substance: LIDOCAINE

REACTIONS (2)
  - Anaemia [Recovered/Resolved]
  - Pain [Recovered/Resolved]

NARRATIVE: CASE EVENT DATE: 20160124
